FAERS Safety Report 23577042 (Version 1)
Quarter: 2024Q1

REPORT INFORMATION
  Report Type: Other
  Country: US (occurrence: US)
  Receive Date: 20240228
  Receipt Date: 20240228
  Transmission Date: 20240410
  Serious: Yes (Hospitalization, Other)
  Sender: FDA-Public Use
  Company Number: US-HLS-202400066

PATIENT
  Age: 66 Year
  Sex: Male

DRUGS (5)
  1. CLOZAPINE [Suspect]
     Active Substance: CLOZAPINE
     Indication: Schizoaffective disorder depressive type
     Dosage: DOSE BEING ESCALATED GRADUALLY BACK TO 100 MG TWICE DAILY IN THE FOLLOWING 10 DAYS
     Route: 048
  2. CLOZAPINE [Suspect]
     Active Substance: CLOZAPINE
     Indication: Schizoaffective disorder depressive type
     Dosage: 100 MG TWICE DAILY
     Route: 048
  3. CLOZAPINE [Suspect]
     Active Substance: CLOZAPINE
     Indication: Schizoaffective disorder depressive type
     Dosage: 25 MG TWICE DAILY
     Route: 048
  4. RISPERIDONE [Suspect]
     Active Substance: RISPERIDONE
     Indication: Schizoaffective disorder depressive type
     Dosage: BEGINNING AT 0.5 MG TWICE DAILY AND GRADUALLY INCREASING TO 2 MG TWICE DAILY BY THE 13TH DAY OF ADMI
     Route: 065
  5. ESCITALOPRAM [Concomitant]
     Active Substance: ESCITALOPRAM OXALATE
     Indication: Schizoaffective disorder depressive type
     Route: 065

REACTIONS (7)
  - Blood pressure increased [Unknown]
  - Withdrawal catatonia [Recovered/Resolved]
  - Blood glucose increased [Unknown]
  - Orthostatic hypotension [Unknown]
  - Product use issue [Unknown]
  - Respiratory rate increased [Unknown]
  - Tachycardia [Unknown]
